FAERS Safety Report 16147794 (Version 2)
Quarter: 2019Q2

REPORT INFORMATION
  Report Type: Spontaneous
  Country: AU (occurrence: AU)
  Receive Date: 20190402
  Receipt Date: 20190409
  Transmission Date: 20190711
  Serious: Yes (Other)
  Sender: FDA-Public Use
  Company Number: AU-PFIZER INC-2019131962

PATIENT
  Age: 60 Year
  Sex: Male
  Weight: 75 kg

DRUGS (9)
  1. MAGNESIUM CHLORIDE. [Suspect]
     Active Substance: MAGNESIUM CHLORIDE
     Dosage: 500 MG, DAILY
  2. ASENAPINE. [Suspect]
     Active Substance: ASENAPINE
     Dosage: 10 MG, 2X/DAY
  3. OLANZAPINE. [Suspect]
     Active Substance: OLANZAPINE
     Dosage: 15 MG, 2X/DAY
  4. SODIUM VALPROATE [Suspect]
     Active Substance: VALPROATE SODIUM
     Dosage: 2400 MG NOCTE
  5. TEMAZEPAM. [Suspect]
     Active Substance: TEMAZEPAM
     Dosage: 20 MG NOCTE
  6. PERINDOPRIL [Suspect]
     Active Substance: PERINDOPRIL
     Indication: HYPERTENSION
     Dosage: 8 MG, 1X/DAY
  7. ATORVASTATIN CALCIUM. [Suspect]
     Active Substance: ATORVASTATIN CALCIUM
     Indication: HYPERLIPIDAEMIA
     Dosage: 80 MG, 1X/DAY
  8. SODIUM BICARBONATE. [Suspect]
     Active Substance: SODIUM BICARBONATE
     Dosage: 840 MG, 2X/DAY
  9. ESOMEPRAZOLE MAGNESIUM. [Suspect]
     Active Substance: ESOMEPRAZOLE MAGNESIUM
     Indication: OESOPHAGITIS
     Dosage: 40 MG, 1X/DAY

REACTIONS (2)
  - Cardiomyopathy [Unknown]
  - Microcytosis [Unknown]

NARRATIVE: CASE EVENT DATE: 20190318
